FAERS Safety Report 24386594 (Version 1)
Quarter: 2024Q4

REPORT INFORMATION
  Report Type: Spontaneous
  Country: BR (occurrence: BR)
  Receive Date: 20241002
  Receipt Date: 20241002
  Transmission Date: 20250115
  Serious: Yes (Other)
  Sender: Y-MABS THERAPEUTICS
  Company Number: BR-Y-MABS THERAPEUTICS, INC.-SPO2024-BR-001745

PATIENT

DRUGS (4)
  1. DANYELZA [Suspect]
     Active Substance: NAXITAMAB-GQGK
     Indication: Product used for unknown indication
     Dosage: CYCLE UNKNOWN, DOSE UNKNOWN
     Route: 042
  2. IRINOTECAN [Concomitant]
     Active Substance: IRINOTECAN
  3. VINCRISTINE [Concomitant]
     Active Substance: VINCRISTINE
  4. TEMOZOLOMIDE [Concomitant]
     Active Substance: TEMOZOLOMIDE

REACTIONS (2)
  - Thrombocytopenia [Unknown]
  - Myelosuppression [Not Recovered/Not Resolved]
